FAERS Safety Report 19001778 (Version 1)
Quarter: 2021Q1

REPORT INFORMATION
  Report Type: Spontaneous
  Country: US (occurrence: US)
  Receive Date: 20210311
  Receipt Date: 20210311
  Transmission Date: 20210420
  Serious: Yes (Hospitalization)
  Sender: FDA-Public Use
  Company Number: None

PATIENT
  Sex: Male

DRUGS (12)
  1. AZELASTINE. [Concomitant]
     Active Substance: AZELASTINE HYDROCHLORIDE
  2. ELIQUIS [Concomitant]
     Active Substance: APIXABAN
  3. PROAIR HFA [Concomitant]
     Active Substance: ALBUTEROL SULFATE
  4. DIGOXIN. [Concomitant]
     Active Substance: DIGOXIN
  5. METOPROL SUC ER [Concomitant]
     Active Substance: METOPROLOL SUCCINATE
  6. TRELEGY ELLIPT [Concomitant]
  7. ASPIRIN. [Concomitant]
     Active Substance: ASPIRIN
  8. PANTOPRAZOLE [Concomitant]
     Active Substance: PANTOPRAZOLE
  9. ESBRIET [Suspect]
     Active Substance: PIRFENIDONE
     Indication: IDIOPATHIC PULMONARY FIBROSIS
     Route: 048
     Dates: start: 20200703
  10. PRAVASTATIN. [Concomitant]
     Active Substance: PRAVASTATIN
  11. LOSARTAN POT [Concomitant]
     Active Substance: LOSARTAN POTASSIUM
  12. MATZIM LA [Concomitant]
     Active Substance: DILTIAZEM HYDROCHLORIDE

REACTIONS (1)
  - Arterial stenosis [None]
